FAERS Safety Report 9868238 (Version 2)
Quarter: 2014Q1

REPORT INFORMATION
  Report Type: Spontaneous
  Country: US (occurrence: US)
  Receive Date: 20140204
  Receipt Date: 20140219
  Transmission Date: 20141002
  Serious: No
  Sender: FDA-Public Use
  Company Number: US-GILEAD-2014-0093399

PATIENT
  Sex: 0

DRUGS (4)
  1. SOVALDI [Suspect]
     Indication: HEPATITIS C
     Dosage: 400 MG, BID
     Route: 065
  2. SOVALDI [Suspect]
     Dosage: 400 MG, QD
     Route: 065
  3. PEGASYS [Concomitant]
     Dosage: 180 MCG, Q1WK
  4. RIBAVIRIN [Concomitant]
     Dosage: 1000 MG, QD (600 MG AM, 400 MG PM)

REACTIONS (1)
  - Overdose [Recovered/Resolved]
